FAERS Safety Report 26128454 (Version 1)
Quarter: 2025Q4

REPORT INFORMATION
  Report Type: Report from Study
  Country: GB (occurrence: GB)
  Receive Date: 20251207
  Receipt Date: 20251207
  Transmission Date: 20260118
  Serious: Yes (Other)
  Sender: ABBVIE
  Company Number: GB-ABBVIE-6575590

PATIENT
  Age: 28 Year
  Sex: Female

DRUGS (1)
  1. SKYRIZI [Suspect]
     Active Substance: RISANKIZUMAB-RZAA
     Indication: Crohn^s disease
     Dosage: FORM STRENGTH: 360MG/2.4ML. DOSE FROM: SOLUTION FOR INJECTION IN CARTRIDGE. DOSE: 1.00 EA.
     Route: 058
     Dates: start: 20250729

REACTIONS (1)
  - Intestinal resection [Recovering/Resolving]

NARRATIVE: CASE EVENT DATE: 20251118
